FAERS Safety Report 10199540 (Version 1)
Quarter: 2014Q2

REPORT INFORMATION
  Report Type: Report from Study
  Country: FR (occurrence: FR)
  Receive Date: 20140527
  Receipt Date: 20140527
  Transmission Date: 20141212
  Serious: Yes (Hospitalization, Other)
  Sender: FDA-Public Use
  Company Number: FR-MPIJNJ-2014JNJ003517

PATIENT
  Sex: 0

DRUGS (5)
  1. VELCADE [Suspect]
     Indication: PLASMA CELL MYELOMA
     Dosage: 2.3 MG, UNK
     Route: 065
     Dates: start: 20110221, end: 20111007
  2. REVLIMID [Suspect]
     Indication: PLASMA CELL MYELOMA
     Dosage: 15 MG, UNK
     Route: 065
     Dates: start: 20110221
  3. DEXAMETHASONE [Suspect]
     Indication: PLASMA CELL MYELOMA
     Dosage: 20 MG, UNK
     Route: 065
     Dates: start: 20110221, end: 20111008
  4. LEVOTHYROXINE [Concomitant]
     Dosage: UNK
  5. INNOHEP [Concomitant]
     Dosage: UNK

REACTIONS (1)
  - Papillary thyroid cancer [Not Recovered/Not Resolved]
